FAERS Safety Report 10963107 (Version 1)
Quarter: 2015Q1

REPORT INFORMATION
  Report Type: Spontaneous
  Country: US (occurrence: US)
  Receive Date: 20150205
  Receipt Date: 20150205
  Transmission Date: 20150721
  Serious: Yes (Death, Other)
  Sender: FDA-Public Use
  Company Number: US-APOTEX-2015AP006090

PATIENT
  Age: 54 Year
  Sex: Female

DRUGS (2)
  1. NADOLOL. [Suspect]
     Active Substance: NADOLOL
  2. SILDENAFIL. [Suspect]
     Active Substance: SILDENAFIL
     Dosage: UNK

REACTIONS (1)
  - Death [Fatal]
